FAERS Safety Report 25434598 (Version 1)
Quarter: 2025Q2

REPORT INFORMATION
  Report Type: Spontaneous
  Country: US (occurrence: None)
  Receive Date: 20250613
  Receipt Date: 20250613
  Transmission Date: 20250717
  Serious: No
  Sender: FDA-CTU
  Company Number: None

PATIENT
  Age: 70 Year
  Sex: Female
  Weight: 63.5 kg

DRUGS (1)
  1. ENBREL [Suspect]
     Active Substance: ETANERCEPT

REACTIONS (7)
  - Product dose omission in error [None]
  - Infection [None]
  - Illness [None]
  - Fall [None]
  - Loss of consciousness [None]
  - Product use issue [None]
  - Product distribution issue [None]
